FAERS Safety Report 21041704 (Version 5)
Quarter: 2022Q4

REPORT INFORMATION
  Report Type: Report from Study
  Country: US (occurrence: US)
  Receive Date: 20220705
  Receipt Date: 20221005
  Transmission Date: 20230112
  Serious: Yes (Other)
  Sender: FDA-Public Use
  Company Number: US-SA-SAC20220701001000

PATIENT
  Age: 58 Year
  Sex: Male

DRUGS (4)
  1. DUPILUMAB [Suspect]
     Active Substance: DUPILUMAB
     Indication: Asthma
     Dosage: 400 MG, 1X
     Route: 058
     Dates: start: 20220427, end: 20220427
  2. DUPILUMAB [Suspect]
     Active Substance: DUPILUMAB
     Dosage: 200 MG, QOW
     Route: 058
     Dates: start: 202205
  3. METOPROLOL [Concomitant]
     Active Substance: METOPROLOL
     Dosage: SINCE AROUND 2007
  4. LISINOPRIL [Concomitant]
     Active Substance: LISINOPRIL
     Dosage: SINCE AROUND 2007

REACTIONS (19)
  - Pneumonia [Unknown]
  - Wheezing [Unknown]
  - Cough [Unknown]
  - Pulmonary congestion [Not Recovered/Not Resolved]
  - Spinal stenosis [Unknown]
  - Intervertebral disc protrusion [Unknown]
  - Lacrimation increased [Not Recovered/Not Resolved]
  - Pain [Recovered/Resolved]
  - Nasal congestion [Recovered/Resolved]
  - Hypertension [Not Recovered/Not Resolved]
  - Pruritus [Unknown]
  - Carpal tunnel syndrome [Not Recovered/Not Resolved]
  - Respiration abnormal [Recovered/Resolved]
  - Ocular discomfort [Not Recovered/Not Resolved]
  - Glycosylated haemoglobin increased [Not Recovered/Not Resolved]
  - Blood glucose increased [Not Recovered/Not Resolved]
  - Insomnia [Unknown]
  - Eye pruritus [Not Recovered/Not Resolved]
  - Accidental exposure to product [Unknown]

NARRATIVE: CASE EVENT DATE: 20220101
